FAERS Safety Report 23278142 (Version 1)
Quarter: 2023Q4

REPORT INFORMATION
  Report Type: Spontaneous
  Country: PT (occurrence: PT)
  Receive Date: 20231208
  Receipt Date: 20231208
  Transmission Date: 20240110
  Serious: Yes (Life-Threatening)
  Sender: FDA-Public Use
  Company Number: None

PATIENT
  Age: 61 Year
  Sex: Female
  Weight: 69.9 kg

DRUGS (1)
  1. ULTRAVIST [Suspect]
     Active Substance: IOPROMIDE
     Dosage: ^769MG/ML^ - ^100ML - 7690MG^
     Route: 042
     Dates: start: 20231117, end: 20231117

REACTIONS (7)
  - Salivary hypersecretion [Unknown]
  - Sneezing [Unknown]
  - Tongue oedema [Unknown]
  - Rash maculo-papular [Unknown]
  - Erythema [Unknown]
  - Eye oedema [Unknown]
  - Lip oedema [Unknown]

NARRATIVE: CASE EVENT DATE: 20231117
